FAERS Safety Report 4844879-8 (Version None)
Quarter: 2005Q4

REPORT INFORMATION
  Report Type: 
  Country: None (occurrence: None)
  Receive Date: 20051128
  Receipt Date: 20051116
  Transmission Date: 20060501
  Serious: Yes (Life-Threatening, Hospitalization)
  Sender: FDA-Public Use
  Company Number: 2005-11-1217

PATIENT
  Age: 50 Year
  Sex: Female
  Weight: 48 kg

DRUGS (6)
  1. PEG-INTRON [Suspect]
     Indication: HEPATIC CIRRHOSIS
     Dosage: 80 MCG QWK SUBCUTANEOUS
     Route: 058
     Dates: start: 20050816, end: 20051108
  2. PEG-INTRON [Suspect]
     Indication: HEPATITIS C
     Dosage: 80 MCG QWK SUBCUTANEOUS
     Route: 058
     Dates: start: 20050816, end: 20051108
  3. REBETOL [Suspect]
     Indication: HEPATIC CIRRHOSIS
     Dosage: 800 MG QD ORAL
     Route: 048
     Dates: start: 20050816, end: 20051030
  4. REBETOL [Suspect]
     Indication: HEPATITIS C
     Dosage: 800 MG QD ORAL
     Route: 048
     Dates: start: 20050816, end: 20051030
  5. SPIRONOLACTONE [Concomitant]
  6. INSULIN ZINC SUSPENSION (CRYSTALLINE) [Concomitant]

REACTIONS (7)
  - DEHYDRATION [None]
  - DIARRHOEA [None]
  - DISORIENTATION [None]
  - HEADACHE [None]
  - HEPATIC FAILURE [None]
  - NEUTROPENIA [None]
  - PYREXIA [None]
